FAERS Safety Report 21595903 (Version 2)
Quarter: 2023Q1

REPORT INFORMATION
  Report Type: Report from Study
  Country: US (occurrence: US)
  Receive Date: 20221115
  Receipt Date: 20230318
  Transmission Date: 20230418
  Serious: Yes (Hospitalization)
  Sender: FDA-Public Use
  Company Number: US-ABBVIE-4200237

PATIENT
  Age: 62 Year
  Sex: Female

DRUGS (5)
  1. RINVOQ [Suspect]
     Active Substance: UPADACITINIB
     Indication: Rheumatoid arthritis
     Dosage: MISSED ONE DOSE
     Route: 048
     Dates: start: 202109, end: 2022
  2. RINVOQ [Suspect]
     Active Substance: UPADACITINIB
     Indication: Rheumatoid arthritis
     Dosage: MISSED DOSE DUE TO SPINAL SURGERY
     Route: 048
     Dates: start: 2022, end: 20230214
  3. RINVOQ [Suspect]
     Active Substance: UPADACITINIB
     Indication: Rheumatoid arthritis
     Route: 048
     Dates: start: 20230218
  4. CLORAZEPATE DIPOTASSIUM [Concomitant]
     Active Substance: CLORAZEPATE DIPOTASSIUM
     Indication: Product used for unknown indication
     Dates: start: 20221017
  5. ASPIRIN [Concomitant]
     Active Substance: ASPIRIN
     Indication: Panic attack

REACTIONS (13)
  - Intervertebral disc protrusion [Unknown]
  - Osteoporosis [Unknown]
  - Sciatica [Unknown]
  - Feeling cold [Recovered/Resolved]
  - Panic attack [Unknown]
  - Musculoskeletal stiffness [Unknown]
  - Night sweats [Unknown]
  - Osteoarthritis [Unknown]
  - Stress [Unknown]
  - Muscle spasms [Unknown]
  - Pain [Unknown]
  - Anxiety [Unknown]
  - Visual impairment [Unknown]

NARRATIVE: CASE EVENT DATE: 20220901
